FAERS Safety Report 9961303 (Version 1)
Quarter: 2014Q1

REPORT INFORMATION
  Report Type: Spontaneous
  Country: MX (occurrence: MX)
  Receive Date: 20140305
  Receipt Date: 20140305
  Transmission Date: 20141002
  Serious: Yes (Other)
  Sender: FDA-Public Use
  Company Number: PHHY2014MX026784

PATIENT
  Age: 7 Year
  Sex: Female

DRUGS (4)
  1. RITALINA [Suspect]
     Indication: ATTENTION DEFICIT/HYPERACTIVITY DISORDER
     Dosage: 0.5 DF, BID
     Route: 048
     Dates: start: 201301
  2. RITALINA [Suspect]
     Dosage: 0.5 DF, BID
     Route: 048
  3. RISPERIDONE [Concomitant]
     Dosage: 0.25 DF, EVERY NIGHT
     Dates: start: 201201
  4. IMIPRAMINE [Concomitant]
     Indication: ATTENTION DEFICIT/HYPERACTIVITY DISORDER
     Dosage: UNK UKN, UNK

REACTIONS (2)
  - Epilepsy [Not Recovered/Not Resolved]
  - Hunger [Not Recovered/Not Resolved]
